FAERS Safety Report 23381962 (Version 1)
Quarter: 2024Q1

REPORT INFORMATION
  Report Type: Spontaneous
  Country: US (occurrence: US)
  Receive Date: 20240109
  Receipt Date: 20240109
  Transmission Date: 20240410
  Serious: No
  Sender: FDA-Public Use
  Company Number: US-TARO PHARMACEUTICALS USA INC.-2023TAR01224

PATIENT

DRUGS (2)
  1. CLOBETASOL PROPIONATE [Suspect]
     Active Substance: CLOBETASOL PROPIONATE
     Indication: Dandruff
     Dosage: UNK, HEAD, I WAS PUTTING LIKE A COUPLE OF DROPS WHERE IT WAS IRRITATED, IN THOSE SPECIFIC AREAS, 5 T
     Route: 061
     Dates: start: 202301
  2. CLOBETASOL PROPIONATE [Suspect]
     Active Substance: CLOBETASOL PROPIONATE
     Dosage: UNK, HEAD, I WAS PUTTING LIKE A COUPLE OF DROPS WHERE IT WAS IRRITATED, IN THOSE SPECIFIC AREAS, 5 T
     Route: 061
     Dates: start: 202301

REACTIONS (1)
  - Alopecia [Recovering/Resolving]

NARRATIVE: CASE EVENT DATE: 20230305
